FAERS Safety Report 8495944-8 (Version None)
Quarter: 2012Q3

REPORT INFORMATION
  Report Type: 
  Country: None (occurrence: None)
  Receive Date: 20120709
  Receipt Date: 20120628
  Transmission Date: 20120928
  Serious: Yes (Hospitalization)
  Sender: FDA-Public Use
  Company Number: CA-GLAXOSMITHKLINE-A0982727A

PATIENT
  Sex: Female
  Weight: 102.3 kg

DRUGS (16)
  1. SINGULAIR [Concomitant]
     Dosage: 10MG UNKNOWN
     Route: 065
  2. DOMPERIDONE [Concomitant]
     Dosage: 10MG THREE TIMES PER DAY
     Route: 065
  3. ACETAMINOPHEN [Concomitant]
     Dosage: 500MG TWICE PER DAY
     Route: 065
  4. VENTOLIN [Concomitant]
     Route: 065
  5. ZYLOPRIM [Concomitant]
     Dosage: 200MG PER DAY
     Route: 065
  6. LECTOPAM TAB [Concomitant]
     Dosage: 4.5MG PER DAY
     Route: 065
  7. VENLAFAXINE [Concomitant]
     Dosage: 150MG PER DAY
     Route: 065
  8. ESOMEPRAZOLE [Concomitant]
     Dosage: 40MG PER DAY
     Route: 065
  9. VITAMIN B COMPLEX CAP [Concomitant]
     Dosage: 400IU TWICE PER DAY
     Route: 065
  10. VERAPAMIL EXTENDED-RELEASE [Concomitant]
     Dosage: 240MG PER DAY
     Route: 065
  11. CALCIUM [Concomitant]
     Dosage: 500MG TWICE PER DAY
  12. QVAR 40 [Concomitant]
     Route: 065
  13. IRON [Concomitant]
     Dosage: 300MG TWICE PER DAY
     Route: 065
  14. ADVAIR DISKUS 100/50 [Suspect]
     Indication: ASTHMA
     Dosage: 1PUFF TWICE PER DAY
     Route: 055
     Dates: start: 19990101
  15. DOCUSATE [Concomitant]
     Dosage: 2TAB AT NIGHT
     Route: 065
  16. WARFARIN SODIUM [Concomitant]
     Route: 065

REACTIONS (8)
  - CARDIAC FIBRILLATION [None]
  - FALL [None]
  - INJURY [None]
  - DRY MOUTH [None]
  - ARRHYTHMIA SUPRAVENTRICULAR [None]
  - CARDIAC DISORDER [None]
  - DACRYOSTENOSIS ACQUIRED [None]
  - SALIVARY GLAND MASS [None]
